FAERS Safety Report 25667400 (Version 3)
Quarter: 2025Q3

REPORT INFORMATION
  Report Type: Report from Study
  Country: US (occurrence: US)
  Receive Date: 20250811
  Receipt Date: 20250909
  Transmission Date: 20251020
  Serious: No
  Sender: MALLINCKRODT
  Company Number: US-MALLINCKRODT-MNK202504896

PATIENT
  Age: 5 Month
  Sex: Female
  Weight: 5 kg

DRUGS (2)
  1. CORTICOTROPIN [Suspect]
     Active Substance: CORTICOTROPIN
     Indication: Infantile spasms
     Dosage: 80 UNITS
     Route: 030
     Dates: start: 20250724, end: 2025
  2. CORTICOTROPIN [Suspect]
     Active Substance: CORTICOTROPIN
     Route: 030
     Dates: start: 2025

REACTIONS (1)
  - Absence of immediate treatment response [Unknown]

NARRATIVE: CASE EVENT DATE: 20250725
